FAERS Safety Report 12722997 (Version 1)
Quarter: 2016Q3

REPORT INFORMATION
  Report Type: Spontaneous
  Country: JP (occurrence: JP)
  Receive Date: 20160908
  Receipt Date: 20160908
  Transmission Date: 20161109
  Serious: Yes (Life-Threatening, Other)
  Sender: FDA-Public Use
  Company Number: JP-009507513-2010SP005074

PATIENT
  Age: 49 Year
  Sex: Female
  Weight: 75 kg

DRUGS (8)
  1. ESLAX INTRAVENOUS 50MG/5.0ML [Suspect]
     Active Substance: ROCURONIUM BROMIDE
     Dosage: DOSAGE/DAILY DOSE UNKNOWN
     Route: 042
     Dates: start: 200910
  2. ESLAX INTRAVENOUS 50MG/5.0ML [Suspect]
     Active Substance: ROCURONIUM BROMIDE
     Indication: NEUROMUSCULAR BLOCKING THERAPY
     Dosage: 50 MG, QD
     Route: 041
     Dates: start: 20100118, end: 20100118
  3. SEVOFRANE [Suspect]
     Active Substance: SEVOFLURANE
     Indication: GENERAL ANAESTHESIA
     Dosage: 50 ML, QD (1.0%)
     Route: 055
     Dates: start: 20100118, end: 20100118
  4. RAVONAL [Suspect]
     Active Substance: THIOPENTAL
     Indication: GENERAL ANAESTHESIA
     Dosage: 250 MG, QD
     Route: 041
     Dates: start: 20110118, end: 20110118
  5. ULTIVA [Suspect]
     Active Substance: REMIFENTANIL HYDROCHLORIDE
     Indication: GENERAL ANAESTHESIA
     Dosage: 3 MG, QD, 0.5 MCG/KG/MIN
     Route: 041
     Dates: start: 20100118, end: 20100118
  6. PROPOFOL. [Suspect]
     Active Substance: PROPOFOL
     Indication: GENERAL ANAESTHESIA
     Dosage: DOSAGE/DAILY DOSE UNKNOWN
     Route: 042
     Dates: start: 200910
  7. ULTIVA [Suspect]
     Active Substance: REMIFENTANIL HYDROCHLORIDE
     Dosage: DOSAGE/DAILY DOSE UNKNOWN
     Route: 042
     Dates: start: 200910
  8. SEVOFRANE [Suspect]
     Active Substance: SEVOFLURANE
     Dosage: DOSAGE/DAILY DOSE UNKNOWN
     Route: 055
     Dates: start: 200910

REACTIONS (8)
  - Tachycardia [Recovered/Resolved]
  - Blood pressure decreased [Recovered/Resolved]
  - Generalised erythema [Recovered/Resolved]
  - Anaphylactoid reaction [Recovered/Resolved]
  - Oxygen saturation decreased [Unknown]
  - Anaphylactoid reaction [Unknown]
  - Shock [Unknown]
  - Generalised erythema [Unknown]

NARRATIVE: CASE EVENT DATE: 200910
